FAERS Safety Report 7751686-5 (Version None)
Quarter: 2011Q3

REPORT INFORMATION
  Report Type: 
  Country: None (occurrence: None)
  Receive Date: 20110915
  Receipt Date: 20110903
  Transmission Date: 20111222
  Serious: Yes (Other)
  Sender: FDA-Public Use
  Company Number: IT-PAR PHARMACEUTICAL, INC-2011SCPR003212

PATIENT

DRUGS (2)
  1. DEXAMETHASONE [Suspect]
     Indication: AMYLOIDOSIS
     Dosage: 20 MG, ON DAYS 1, 2, 8 AND 9
     Route: 048
  2. BORTEZOMIB [Suspect]
     Indication: AMYLOIDOSIS
     Dosage: 1.3 MG/M2, ON DAYS 1, 4 ,8 AND 11.
     Route: 065

REACTIONS (5)
  - ORTHOSTATIC HYPOTENSION [None]
  - FATIGUE [None]
  - CONSTIPATION [None]
  - OEDEMA PERIPHERAL [None]
  - PERIPHERAL SENSORIMOTOR NEUROPATHY [None]
